FAERS Safety Report 26014026 (Version 2)
Quarter: 2025Q4

REPORT INFORMATION
  Report Type: Spontaneous
  Country: US (occurrence: US)
  Receive Date: 20251108
  Receipt Date: 20251113
  Transmission Date: 20260117
  Serious: No
  Sender: AMGEN
  Company Number: US-AMGEN-USASP2025219256

PATIENT
  Sex: Female

DRUGS (2)
  1. PROLIA [Suspect]
     Active Substance: DENOSUMAB
     Indication: Osteoporosis
     Dosage: UNK
     Route: 065
     Dates: start: 202212
  2. JUBBONTI [Concomitant]
     Active Substance: DENOSUMAB-BBDZ
     Dosage: UNK

REACTIONS (2)
  - Platelet count increased [Unknown]
  - Unevaluable event [Unknown]
